FAERS Safety Report 5054619-8 (Version None)
Quarter: 2006Q3

REPORT INFORMATION
  Report Type: 
  Country: None (occurrence: None)
  Receive Date: 20060719
  Receipt Date: 20060707
  Transmission Date: 20061208
  Serious: Yes (Other)
  Sender: FDA-Public Use
  Company Number: US-JNJFOC-20060404448

PATIENT
  Sex: Male
  Weight: 78.02 kg

DRUGS (12)
  1. REMICADE [Suspect]
     Route: 042
  2. REMICADE [Suspect]
     Indication: RHEUMATOID ARTHRITIS
     Route: 042
  3. REMICADE [Suspect]
     Indication: CROHN'S DISEASE
     Route: 042
  4. PREDNISONE [Concomitant]
  5. ASACOL [Concomitant]
  6. IMURAN [Concomitant]
     Dosage: ALSO REPORTED AS 100 MG
  7. ACTONEL [Concomitant]
     Indication: OSTEOPOROSIS
  8. ENTOCORT [Concomitant]
  9. CELEBREX [Concomitant]
  10. FLEXERIL [Concomitant]
  11. BENTYL [Concomitant]
  12. OXYCONTIN [Concomitant]

REACTIONS (1)
  - RETINAL VEIN THROMBOSIS [None]
